FAERS Safety Report 12404360 (Version 2)
Quarter: 2019Q4

REPORT INFORMATION
  Report Type: Spontaneous
  Country: US (occurrence: US)
  Receive Date: 20160525
  Receipt Date: 20191223
  Transmission Date: 20200122
  Serious: Yes (Other)
  Sender: FDA-Public Use
  Company Number: US-PFIZER INC-2016272309

PATIENT
  Age: 69 Year
  Sex: Male

DRUGS (4)
  1. VIAGRA [Suspect]
     Active Substance: SILDENAFIL CITRATE
     Indication: ERECTILE DYSFUNCTION
     Dosage: UNK
     Route: 048
     Dates: start: 2003
  2. VIAGRA [Suspect]
     Active Substance: SILDENAFIL CITRATE
     Dosage: UNK, REGULARLY
     Route: 048
     Dates: start: 2011, end: 201411
  3. SILDENAFIL CITRATE. [Suspect]
     Active Substance: SILDENAFIL CITRATE
     Indication: ERECTILE DYSFUNCTION
     Dosage: 0.5 DF, WEEKLY (^100, G^, TAKE 1/2 TABLET ONCE A WEEK, SOMETIMES MORE)
     Dates: start: 20120110, end: 201412
  4. VARDENAFIL [Concomitant]
     Active Substance: VARDENAFIL HYDROCHLORIDE
     Indication: ERECTILE DYSFUNCTION
     Dosage: 0.5 DF, WEEKLY (^20, G^ TABLET, TAKE 1/2 TABLET, ONCE A WEEK)
     Dates: start: 20091008, end: 20111122

REACTIONS (3)
  - Emotional distress [Unknown]
  - Anxiety [Unknown]
  - Malignant melanoma [Unknown]

NARRATIVE: CASE EVENT DATE: 20140611
